FAERS Safety Report 5727558-4 (Version None)
Quarter: 2008Q2

REPORT INFORMATION
  Report Type: 
  Country: None (occurrence: None)
  Receive Date: 20080501
  Receipt Date: 20080501
  Transmission Date: 20081010
  Serious: Yes (Other)
  Sender: FDA-Public Use
  Company Number: None

PATIENT
  Age: 53 Year
  Sex: Male
  Weight: 95.709 kg

DRUGS (2)
  1. LUNESTA [Suspect]
     Indication: LIBIDO DECREASED
     Dosage: 1 DAILY AT NIGHT PO
     Route: 048
     Dates: start: 20080201, end: 20080430
  2. LUNESTA [Suspect]

REACTIONS (2)
  - DRUG EFFECT DECREASED [None]
  - LIBIDO DECREASED [None]
